FAERS Safety Report 25835169 (Version 1)
Quarter: 2025Q3

REPORT INFORMATION
  Report Type: Spontaneous
  Country: US (occurrence: US)
  Receive Date: 20250923
  Receipt Date: 20250923
  Transmission Date: 20251021
  Serious: Yes (Other)
  Sender: RANBAXY
  Company Number: US-SUN PHARMACEUTICAL INDUSTRIES LTD-2025R1-527577

PATIENT
  Age: 37 Year
  Sex: Male

DRUGS (1)
  1. CIPROFLOXACIN [Suspect]
     Active Substance: CIPROFLOXACIN
     Indication: Cellulitis
     Route: 065

REACTIONS (6)
  - Inflammatory marker increased [Unknown]
  - Tachycardia [Unknown]
  - Drug ineffective [Unknown]
  - Tachypnoea [Unknown]
  - Pancytopenia [Unknown]
  - Acute kidney injury [Unknown]
